FAERS Safety Report 12145811 (Version 1)
Quarter: 2016Q1

REPORT INFORMATION
  Report Type: Spontaneous
  Country: US (occurrence: US)
  Receive Date: 20160304
  Receipt Date: 20160304
  Transmission Date: 20160526
  Serious: No
  Sender: FDA-Public Use
  Company Number: US-VERTEX PHARMACEUTICALS-2016-001296

PATIENT
  Age: 12 Year
  Sex: Male
  Weight: 45 kg

DRUGS (14)
  1. ORKAMBI [Suspect]
     Active Substance: IVACAFTOR\LUMACAFTOR
     Indication: CYSTIC FIBROSIS
     Dosage: UNK
     Route: 048
     Dates: start: 201510
  2. CYPROHEPTADINE. [Concomitant]
     Active Substance: CYPROHEPTADINE
  3. LANSOPRAZOLE. [Concomitant]
     Active Substance: LANSOPRAZOLE
  4. CAYSTON [Concomitant]
     Active Substance: AZTREONAM
  5. ALBUTEROL. [Concomitant]
     Active Substance: ALBUTEROL
  6. MONTELUKAST [Concomitant]
     Active Substance: MONTELUKAST SODIUM
  7. FLONASE [Concomitant]
     Active Substance: FLUTICASONE PROPIONATE
     Route: 055
  8. PULMOZYME [Concomitant]
     Active Substance: DORNASE ALFA
  9. MULTIVITAMIN [Concomitant]
     Active Substance: VITAMINS
  10. AZITHROMYCIN ANHYDROUS. [Concomitant]
     Active Substance: AZITHROMYCIN ANHYDROUS
     Dosage: MONDAYS, WEDNESDAYS AND FRIDAYS
  11. FLUTICASONE [Concomitant]
     Active Substance: FLUTICASONE\FLUTICASONE PROPIONATE
     Dosage: 44 MCG
     Route: 055
  12. VITAMIN D3 [Concomitant]
     Active Substance: CHOLECALCIFEROL
  13. ORKAMBI [Suspect]
     Active Substance: IVACAFTOR\LUMACAFTOR
     Dosage: UNK
     Route: 048
     Dates: start: 20160223
  14. CREON [Concomitant]
     Active Substance: PANCRELIPASE AMYLASE\PANCRELIPASE LIPASE\PANCRELIPASE PROTEASE

REACTIONS (1)
  - Urticaria [Recovered/Resolved]

NARRATIVE: CASE EVENT DATE: 201510
